FAERS Safety Report 15494676 (Version 1)
Quarter: 2018Q4

REPORT INFORMATION
  Report Type: Spontaneous
  Country: BE (occurrence: BE)
  Receive Date: 20181012
  Receipt Date: 20181012
  Transmission Date: 20190205
  Serious: Yes (Hospitalization, Other)
  Sender: FDA-Public Use
  Company Number: BE-UNICHEM PHARMACEUTICALS (USA) INC-UCM201809-000253

PATIENT
  Age: 38 Year
  Sex: Female

DRUGS (5)
  1. HALOPERIDOL DECANOATE. [Concomitant]
     Active Substance: HALOPERIDOL DECANOATE
     Route: 030
  2. CITALOPRAM [Concomitant]
     Active Substance: CITALOPRAM HYDROBROMIDE
     Route: 042
  3. ARIPIPRAZOLE. [Concomitant]
     Active Substance: ARIPIPRAZOLE
     Route: 030
  4. ESCITALOPRAM [Concomitant]
     Active Substance: ESCITALOPRAM OXALATE
  5. QUETIAPINE. [Suspect]
     Active Substance: QUETIAPINE

REACTIONS (14)
  - Delirium [Recovered/Resolved]
  - Hypertriglyceridaemia [Recovering/Resolving]
  - Sarcopenia [Unknown]
  - Tachycardia [Unknown]
  - Thrombotic thrombocytopenic purpura [Unknown]
  - Haemolytic anaemia [Unknown]
  - Pancreatitis [Unknown]
  - Thrombocytopenia [Recovering/Resolving]
  - Renal failure [Unknown]
  - Metabolic acidosis [Unknown]
  - Purpura [Unknown]
  - Haemodynamic instability [Unknown]
  - Respiratory failure [Unknown]
  - Abdominal pain [Unknown]
